FAERS Safety Report 8197625-7 (Version None)
Quarter: 2012Q1

REPORT INFORMATION
  Report Type: 
  Country: None (occurrence: None)
  Receive Date: 20120309
  Receipt Date: 20120229
  Transmission Date: 20120608
  Serious: Yes (Death)
  Sender: FDA-Public Use
  Company Number: US-SANOFI-AVENTIS-2012SA013952

PATIENT
  Age: 29 Year
  Sex: Female

DRUGS (6)
  1. VIIBRYD [Suspect]
     Dates: start: 20111212, end: 20111228
  2. AMBIEN [Suspect]
     Indication: INSOMNIA
     Route: 048
     Dates: start: 20111226, end: 20111228
  3. VIIBRYD [Suspect]
     Indication: DEPRESSION
     Dates: start: 20111128, end: 20111204
  4. WELLBUTRIN [Suspect]
     Dates: start: 20111228, end: 20111228
  5. VIIBRYD [Suspect]
     Dates: start: 20111205, end: 20111211
  6. WELLBUTRIN [Suspect]
     Dates: start: 20110824, end: 20110907

REACTIONS (1)
  - COMPLETED SUICIDE [None]
